FAERS Safety Report 9481336 (Version 1)
Quarter: 2013Q3

REPORT INFORMATION
  Report Type: Spontaneous
  Country: US (occurrence: US)
  Receive Date: 20130828
  Receipt Date: 20130828
  Transmission Date: 20140515
  Serious: Yes (Death)
  Sender: FDA-Public Use
  Company Number: US-AMGEN-KDL161272

PATIENT
  Sex: Female

DRUGS (2)
  1. ENBREL [Suspect]
     Indication: GRAFT VERSUS HOST DISEASE
     Dosage: UNK UNK, UNK
     Route: 065
     Dates: start: 20050901
  2. ENBREL [Suspect]
     Indication: PRODUCT USED FOR UNKNOWN INDICATION

REACTIONS (1)
  - Death [Fatal]
